FAERS Safety Report 14925096 (Version 7)
Quarter: 2018Q4

REPORT INFORMATION
  Report Type: Spontaneous
  Country: US (occurrence: US)
  Receive Date: 20180522
  Receipt Date: 20181022
  Transmission Date: 20190204
  Serious: Yes (Congenital Anomaly, Other)
  Sender: FDA-Public Use
  Company Number: PHEH2018US019776

PATIENT
  Sex: Male

DRUGS (3)
  1. ZOFRAN [Suspect]
     Active Substance: ONDANSETRON HYDROCHLORIDE
     Indication: FOETAL EXPOSURE DURING PREGNANCY
     Dosage: MOTHER DOSE: 4 MG, UNK
     Route: 064
  2. ZOFRAN ODT [Suspect]
     Active Substance: ONDANSETRON HYDROCHLORIDE
     Indication: FOETAL EXPOSURE DURING PREGNANCY
     Dosage: MOTHER^S DOSE: 4 MG, TID, PRN
     Route: 064
  3. ZOFRAN [Suspect]
     Active Substance: ONDANSETRON HYDROCHLORIDE
     Indication: FOETAL EXPOSURE DURING PREGNANCY
     Dosage: MOTHER^S DOSE: 4 MG, BID
     Route: 064

REACTIONS (27)
  - Pyrexia [Unknown]
  - Anxiety [Unknown]
  - Headache [Unknown]
  - Sinusitis [Unknown]
  - Otitis media chronic [Unknown]
  - Injury [Unknown]
  - Conjunctivitis [Unknown]
  - Pharyngitis [Unknown]
  - Rhinorrhoea [Unknown]
  - Eustachian tube dysfunction [Unknown]
  - Tympanic membrane perforation [Unknown]
  - Viral infection [Unknown]
  - Pharyngitis streptococcal [Unknown]
  - Cleft lip and palate [Unknown]
  - Velopharyngeal incompetence [Unknown]
  - Rhinitis [Unknown]
  - Cough [Unknown]
  - Foetal exposure during pregnancy [Unknown]
  - Upper respiratory tract infection [Unknown]
  - Bronchitis [Unknown]
  - Tooth infection [Unknown]
  - Ventricular septal defect [Unknown]
  - Tonsillitis streptococcal [Unknown]
  - Cardiac murmur [Unknown]
  - Otitis media acute [Unknown]
  - Acute sinusitis [Unknown]
  - Herpangina [Unknown]
